FAERS Safety Report 21052592 (Version 1)
Quarter: 2022Q3

REPORT INFORMATION
  Report Type: Spontaneous
  Country: US (occurrence: None)
  Receive Date: 20220706
  Receipt Date: 20220706
  Transmission Date: 20221027
  Serious: Yes (Other)
  Sender: FDA-Public Use
  Company Number: None

PATIENT
  Sex: Female

DRUGS (5)
  1. COSENTYX [Suspect]
     Active Substance: SECUKINUMAB
     Indication: Ankylosing spondylitis
     Dosage: FREQUENCY : MONTHLY;?
     Route: 058
     Dates: start: 20210504
  2. HUMIRA [Concomitant]
     Active Substance: ADALIMUMAB
  3. HYDROCODONE [Concomitant]
     Active Substance: HYDROCODONE
  4. UNSPECIFIED INGREDIENT [Concomitant]
     Active Substance: UNSPECIFIED INGREDIENT
  5. SULFASALAZINE DELAYED-RELEASE [Concomitant]
     Active Substance: SULFASALAZINE

REACTIONS (6)
  - Condition aggravated [None]
  - Diarrhoea [None]
  - Fatigue [None]
  - Alopecia [None]
  - Alopecia [None]
  - Therapy interrupted [None]
